FAERS Safety Report 7777181-5 (Version None)
Quarter: 2011Q3

REPORT INFORMATION
  Report Type: 
  Country: None (occurrence: None)
  Receive Date: 20110926
  Receipt Date: 20110916
  Transmission Date: 20111222
  Serious: Yes (Other)
  Sender: FDA-Public Use
  Company Number: CA-JNJFOC-20110907951

PATIENT

DRUGS (5)
  1. REMICADE [Suspect]
     Indication: CROHN'S DISEASE
     Route: 042
  2. IMURAN [Suspect]
     Indication: PRODUCT USED FOR UNKNOWN INDICATION
  3. METHOTREXATE [Suspect]
     Indication: PRODUCT USED FOR UNKNOWN INDICATION
  4. REMICADE [Suspect]
     Dosage: AT 0, 2, AND 6 WEEKS
     Route: 042
  5. REMICADE [Suspect]
     Dosage: REINTRODUCED
     Route: 042

REACTIONS (3)
  - BASAL CELL CARCINOMA [None]
  - RASH [None]
  - CROHN'S DISEASE [None]
